FAERS Safety Report 14479496 (Version 1)
Quarter: 2018Q1

REPORT INFORMATION
  Report Type: Spontaneous
  Country: US (occurrence: US)
  Receive Date: 20180202
  Receipt Date: 20180202
  Transmission Date: 20180509
  Serious: No
  Sender: FDA-Public Use
  Company Number: US-TRIS PHARMA, INC-2018TRISPO00024

PATIENT

DRUGS (4)
  1. KARBINAL ER [Suspect]
     Active Substance: CARBINOXAMINE MALEATE
     Dosage: 4 MG, QD
     Route: 048
     Dates: start: 20171231, end: 20180101
  2. VITAMIN C (DIETARY SUPPLEMENT) [Concomitant]
     Indication: PRODUCT USED FOR UNKNOWN INDICATION
     Dosage: UNK QD
     Route: 065
  3. KARBINAL ER [Suspect]
     Active Substance: CARBINOXAMINE MALEATE
     Indication: MULTIPLE ALLERGIES
     Dosage: 4 MG, BID
     Route: 048
     Dates: start: 20171227, end: 20171230
  4. CHILDRENS IBUPROFEN [Concomitant]
     Active Substance: IBUPROFEN
     Indication: EAR PAIN
     Dosage: 7.5 ML, AS NEEDED BEFORE BED
     Route: 065

REACTIONS (2)
  - Coeliac disease [Not Recovered/Not Resolved]
  - Inappropriate schedule of drug administration [Unknown]

NARRATIVE: CASE EVENT DATE: 201801
